FAERS Safety Report 21918137 (Version 1)
Quarter: 2023Q1

REPORT INFORMATION
  Report Type: Spontaneous
  Country: US (occurrence: US)
  Receive Date: 20230127
  Receipt Date: 20230127
  Transmission Date: 20230418
  Serious: No
  Sender: FDA-Public Use
  Company Number: US-ABBVIE-4283653

PATIENT
  Sex: Male

DRUGS (13)
  1. VENETOCLAX [Suspect]
     Active Substance: VENETOCLAX
     Indication: Myelodysplastic syndrome
     Dosage: STRENGTH: 100 MILLIGRAM
     Route: 048
     Dates: start: 20221231
  2. ZOFRAN [Concomitant]
     Active Substance: ONDANSETRON HYDROCHLORIDE
     Indication: Nausea
     Dosage: STRENGTH: 8 MILLIGRAM?FREQUENCY TEXT: 8 HOURS
     Route: 048
     Dates: start: 20230106
  3. SODIUM CHLORIDE [Concomitant]
     Active Substance: SODIUM CHLORIDE
     Indication: Product used for unknown indication
     Dosage: STRENGTH: 0.9 PERCENT
     Dates: start: 20230120, end: 20230120
  4. CIALIS [Concomitant]
     Active Substance: TADALAFIL
     Indication: Product used for unknown indication
     Dosage: STRENGTH: 5 MILLIGRAM
     Route: 048
  5. PRINIVIL [Concomitant]
     Active Substance: LISINOPRIL
     Indication: Product used for unknown indication
     Dosage: STRENGTH: 10 MILLIGRAM
     Route: 048
     Dates: start: 20220116
  6. ADCIRCA [Concomitant]
     Active Substance: TADALAFIL
     Indication: Product used for unknown indication
     Route: 048
  7. COMPAZINE [Concomitant]
     Active Substance: PROCHLORPERAZINE MALEATE
     Indication: Nausea
     Route: 048
     Dates: start: 20230106
  8. ZOVIRAX [Concomitant]
     Active Substance: ACYCLOVIR
     Indication: Product used for unknown indication
     Dosage: STRENGTH: 400 MILLIGRAM
     Route: 048
     Dates: start: 20230106
  9. ZESTRIL [Concomitant]
     Active Substance: LISINOPRIL
     Indication: Product used for unknown indication
     Dosage: STRENGTH: 10 MILLIGRAM
     Route: 048
     Dates: start: 20221216
  10. PRILOSEC [Concomitant]
     Active Substance: OMEPRAZOLE MAGNESIUM
     Indication: Product used for unknown indication
     Dosage: BEFORE BREAKFAST DO NOT CHEW, CRUSH, OPEN CAPSULES?STRENGTH: 20 MILLIGRAM
     Route: 048
  11. HEPARIN [Concomitant]
     Active Substance: HEPARIN SODIUM
     Indication: Product used for unknown indication
     Dates: start: 20230120, end: 20230120
  12. LEVAQUIN [Concomitant]
     Active Substance: LEVOFLOXACIN
     Indication: Product used for unknown indication
     Dosage: 500 MG ON EMPTY STOMACH
     Route: 048
     Dates: start: 20230106
  13. NOXAFIL [Concomitant]
     Active Substance: POSACONAZOLE
     Indication: Product used for unknown indication
     Dosage: TIME INTERVAL: 0.33333333 DAYS: WITH BREAKFAST?STRENGTH: 100 MILLIGRAM
     Route: 048
     Dates: start: 20230102

REACTIONS (1)
  - Off label use [Unknown]
